FAERS Safety Report 21216747 (Version 1)
Quarter: 2022Q3

REPORT INFORMATION
  Report Type: Spontaneous
  Country: US (occurrence: None)
  Receive Date: 20220815
  Receipt Date: 20220815
  Transmission Date: 20221027
  Serious: Yes (Other)
  Sender: FDA-Public Use
  Company Number: None

PATIENT
  Age: 38 Year
  Sex: Male
  Weight: 78.75 kg

DRUGS (4)
  1. ZTLIDO [Suspect]
     Active Substance: LIDOCAINE
     Indication: Neuralgia
     Dosage: OTHER QUANTITY : 1 PATCH(ES);?FREQUENCY : AS NEEDED;?
     Route: 062
     Dates: start: 20220808, end: 20220815
  2. PANTOPRAZOLE SODIUM [Concomitant]
     Active Substance: PANTOPRAZOLE SODIUM
  3. TESTOSTERONE ENANTHATE [Concomitant]
     Active Substance: TESTOSTERONE ENANTHATE
  4. hydrocosone-acetamin [Concomitant]

REACTIONS (4)
  - Application site erythema [None]
  - Application site irritation [None]
  - Application site inflammation [None]
  - Application site pustules [None]

NARRATIVE: CASE EVENT DATE: 20220815
